FAERS Safety Report 20967537 (Version 1)
Quarter: 2022Q2

REPORT INFORMATION
  Report Type: Spontaneous
  Country: US (occurrence: US)
  Receive Date: 20220616
  Receipt Date: 20220616
  Transmission Date: 20220721
  Serious: No
  Sender: FDA-Public Use
  Company Number: US-PFIZER INC-202200837600

PATIENT
  Age: 34 Year
  Sex: Female

DRUGS (1)
  1. SERTRALINE HYDROCHLORIDE [Suspect]
     Active Substance: SERTRALINE HYDROCHLORIDE
     Dosage: UNK

REACTIONS (8)
  - Drug hypersensitivity [Unknown]
  - Muscle tightness [Unknown]
  - Pruritus [Unknown]
  - Headache [Unknown]
  - Hypoaesthesia [Unknown]
  - Pollakiuria [Unknown]
  - Anxiety [Unknown]
  - Burning sensation [Unknown]
